FAERS Safety Report 5206941-X (Version None)
Quarter: 2007Q1

REPORT INFORMATION
  Report Type: 
  Country: None (occurrence: None)
  Receive Date: 20070105
  Receipt Date: 20070105
  Transmission Date: 20070707
  Serious: No
  Sender: FDA-Public Use
  Company Number: None

PATIENT
  Age: 58 Year
  Sex: Female
  Weight: 81.6475 kg

DRUGS (4)
  1. PREMARIN [Suspect]
     Indication: HYSTERECTOMY
     Dosage: 0.625MG TABLET BY MOUTH ONCE DAILY
     Route: 048
     Dates: start: 20061208
  2. ADDERALL 10 [Concomitant]
  3. VYTORIN [Concomitant]
  4. FOSAMAX [Concomitant]

REACTIONS (3)
  - HOT FLUSH [None]
  - INSOMNIA [None]
  - IRRITABILITY [None]
